FAERS Safety Report 13010441 (Version 1)
Quarter: 2016Q4

REPORT INFORMATION
  Report Type: Spontaneous
  Country: US (occurrence: US)
  Receive Date: 20161208
  Receipt Date: 20161208
  Transmission Date: 20170207
  Serious: No
  Sender: FDA-Public Use
  Company Number: None

PATIENT
  Age: 76 Year
  Sex: Female

DRUGS (2)
  1. TACROLIMUS CAP 1MG [Suspect]
     Active Substance: TACROLIMUS
     Indication: ARTHRITIS
  2. TACROLIMUS CAP 1MG [Suspect]
     Active Substance: TACROLIMUS
     Indication: SLEEP DISORDER DUE TO GENERAL MEDICAL CONDITION, INSOMNIA TYPE

REACTIONS (3)
  - Blood pressure increased [None]
  - Blood glucose increased [None]
  - Headache [None]

NARRATIVE: CASE EVENT DATE: 20161102
